FAERS Safety Report 24042615 (Version 1)
Quarter: 2024Q3

REPORT INFORMATION
  Report Type: Spontaneous
  Country: US (occurrence: US)
  Receive Date: 20240702
  Receipt Date: 20240702
  Transmission Date: 20241017
  Serious: No
  Sender: INTRA-CELLULAR THERAPIES
  Company Number: US-INTRA-CELLULAR THERAPIES, INC.-2024ICT00960

PATIENT
  Age: 21 Year
  Sex: Female

DRUGS (1)
  1. CAPLYTA [Suspect]
     Active Substance: LUMATEPERONE
     Dosage: 42 MG
     Dates: start: 202404

REACTIONS (3)
  - Anxiety [Recovering/Resolving]
  - Insomnia [Recovering/Resolving]
  - Extra dose administered [Recovered/Resolved]

NARRATIVE: CASE EVENT DATE: 20240501
